FAERS Safety Report 23959196 (Version 3)
Quarter: 2025Q3

REPORT INFORMATION
  Report Type: Spontaneous
  Country: US (occurrence: US)
  Receive Date: 20240611
  Receipt Date: 20250918
  Transmission Date: 20251021
  Serious: Yes (Other)
  Sender: BRISTOL-MYERS SQUIBB COMPANY
  Company Number: US-BRISTOL-MYERS SQUIBB COMPANY-2024-091817

PATIENT
  Age: 71 Year
  Sex: Male

DRUGS (2)
  1. POMALYST [Suspect]
     Active Substance: POMALIDOMIDE
     Indication: Plasma cell myeloma
     Dates: start: 20231018, end: 20240515
  2. POMALYST [Suspect]
     Active Substance: POMALIDOMIDE
     Indication: Bone disorder
     Dosage: FREQUENCY: TAKE 1 CAPSULE BY MOUTH ONCE DAILY ON DAYS 1-21 FOLLOWED BY 7 DAYS REST EVERY 28 DAY CHEMOTHERAPY CYCLE

REACTIONS (4)
  - Fatigue [Unknown]
  - Constipation [Unknown]
  - Deep vein thrombosis [Unknown]
  - Pneumonia [Recovered/Resolved]
